FAERS Safety Report 5445460-2 (Version None)
Quarter: 2007Q3

REPORT INFORMATION
  Report Type: 
  Country: None (occurrence: None)
  Receive Date: 20070906
  Receipt Date: 20070904
  Transmission Date: 20080115
  Serious: Yes (Other)
  Sender: FDA-Public Use
  Company Number: GB-ROXANE LABORATORIES, INC-2007-DE-05268GD

PATIENT
  Age: 36 Year
  Sex: Female
  Weight: 47 kg

DRUGS (3)
  1. MORPHINE [Suspect]
     Indication: LABOUR PAIN
     Route: 030
  2. MAGNESIUM SULFATE [Suspect]
     Indication: PRE-ECLAMPSIA
     Dosage: 5 G LOADING DOSE FOLLOWED BY INFUSION OF 1 G/H
  3. LABETALOL HCL [Concomitant]
     Indication: HYPERTENSION

REACTIONS (4)
  - RESPIRATORY ACIDOSIS [None]
  - RESPIRATORY DEPRESSION [None]
  - STUPOR [None]
  - UNRESPONSIVE TO STIMULI [None]
